FAERS Safety Report 10678507 (Version 1)
Quarter: 2014Q4

REPORT INFORMATION
  Report Type: Spontaneous
  Country: GR (occurrence: None)
  Receive Date: 20141223
  Receipt Date: 20141223
  Transmission Date: 20150529
  Serious: Yes (Other)
  Sender: FDA-Public Use
  Company Number: INT_00550_2014

PATIENT
  Age: 78 Year
  Sex: Female

DRUGS (6)
  1. PACLITAXEL. [Suspect]
     Active Substance: PACLITAXEL
     Indication: ADRENAL GLAND CANCER
     Dosage: 10 CYCLES?
  2. CISPLATIN (CISPLATIN) (HQ SPECIALTY) [Suspect]
     Active Substance: CISPLATIN
     Indication: ADRENAL GLAND CANCER
     Dosage: 40 MG/M2, [6 CYCLES]?
  3. ADRIAMYCIN [Suspect]
     Active Substance: DOXORUBICIN HYDROCHLORIDE
     Indication: ADRENAL GLAND CANCER
     Dosage: 40 MG/M2, [6 CYCLES] ?
  4. HYDROCORTISONE. [Concomitant]
     Active Substance: HYDROCORTISONE
  5. MITOTANE [Suspect]
     Active Substance: MITOTANE
     Indication: ADRENAL GLAND CANCER
     Dosage: 2 G, [PER DAY] ORAL?
     Route: 048
  6. ETOPOSIDE. [Suspect]
     Active Substance: ETOPOSIDE
     Indication: ADRENAL GLAND CANCER
     Dosage: 100 MG/M2, [6 CYCLES]

REACTIONS (7)
  - Superior vena cava occlusion [None]
  - Abdominal pain [None]
  - Metastases to peritoneum [None]
  - Dyspnoea [None]
  - Swelling face [None]
  - Vasodilatation [None]
  - Atrial fibrillation [None]
